FAERS Safety Report 5359891-2 (Version None)
Quarter: 2007Q2

REPORT INFORMATION
  Report Type: 
  Country: None (occurrence: None)
  Receive Date: 20070531
  Receipt Date: 20061116
  Transmission Date: 20071010
  Serious: Yes (Disabling)
  Sender: FDA-Public Use
  Company Number: WAES 0611USA05117

PATIENT
  Age: 75 Year
  Sex: Male

DRUGS (6)
  1. EMEND [Suspect]
     Indication: PROPHYLAXIS
     Dosage: SEE IMAGE
     Route: 048
     Dates: start: 20060911, end: 20060911
  2. EMEND [Suspect]
     Indication: PROPHYLAXIS
     Dosage: SEE IMAGE
     Route: 048
     Dates: start: 20060912, end: 20060912
  3. EMEND [Suspect]
     Indication: PROPHYLAXIS
     Dosage: SEE IMAGE
     Route: 048
     Dates: start: 20060913, end: 20060913
  4. DECADRON [Concomitant]
  5. ELOXATIN [Concomitant]
  6. FLUOROURACIL [Concomitant]

REACTIONS (3)
  - ASTHENIA [None]
  - HICCUPS [None]
  - INSOMNIA [None]
